FAERS Safety Report 9313989 (Version 1)
Quarter: 2013Q2

REPORT INFORMATION
  Report Type: Spontaneous
  Country: US (occurrence: None)
  Receive Date: 20130524
  Receipt Date: 20130524
  Transmission Date: 20140414
  Serious: Yes (Other)
  Sender: FDA-Public Use
  Company Number: None

PATIENT
  Age: 60 Year
  Sex: Female

DRUGS (1)
  1. SUTENT [Suspect]
     Route: 048
     Dates: start: 20120425, end: 20121217

REACTIONS (3)
  - Cognitive disorder [None]
  - Disturbance in attention [None]
  - Memory impairment [None]
